FAERS Safety Report 7455610-4 (Version None)
Quarter: 2011Q2

REPORT INFORMATION
  Report Type: 
  Country: None (occurrence: None)
  Receive Date: 20110503
  Receipt Date: 20110428
  Transmission Date: 20111010
  Serious: Yes (Other)
  Sender: FDA-Public Use
  Company Number: ES-ROCHE-773928

PATIENT
  Age: 70 Year
  Sex: Female

DRUGS (4)
  1. OXALIPLATIN [Suspect]
     Indication: METASTATIC GASTRIC CANCER
     Route: 065
  2. CAPECITABINE [Suspect]
     Route: 065
  3. CAPECITABINE [Suspect]
     Indication: METASTATIC GASTRIC CANCER
     Dosage: STARTING DOSE.
     Route: 065
  4. CAPECITABINE [Suspect]
     Dosage: MAINTENANCE DOSE.
     Route: 065

REACTIONS (1)
  - DRUG INTOLERANCE [None]
